FAERS Safety Report 10143060 (Version 1)
Quarter: 2014Q2

REPORT INFORMATION
  Report Type: Spontaneous
  Country: US (occurrence: None)
  Receive Date: 20140429
  Receipt Date: 20140429
  Transmission Date: 20141212
  Serious: Yes (Other)
  Sender: FDA-Public Use
  Company Number: None

PATIENT
  Age: 68 Year
  Sex: Female
  Weight: 68.04 kg

DRUGS (4)
  1. PRAVASTATIN 40 MG GLENMARK [Suspect]
     Indication: HYPERLIPIDAEMIA
     Route: 048
     Dates: start: 20111101, end: 20130101
  2. ASPIRIN [Concomitant]
  3. CALCIUM [Concomitant]
  4. PRILOSEC [Concomitant]

REACTIONS (1)
  - Psoriasis [None]
